FAERS Safety Report 12272607 (Version 2)
Quarter: 2016Q2

REPORT INFORMATION
  Report Type: Spontaneous
  Country: US (occurrence: US)
  Receive Date: 20160415
  Receipt Date: 20160602
  Transmission Date: 20160815
  Serious: No
  Sender: FDA-Public Use
  Company Number: US-MDT-ADR-2016-00687

PATIENT
  Age: 37 Year
  Sex: Female

DRUGS (7)
  1. DILAUDID [Suspect]
     Active Substance: HYDROMORPHONE HYDROCHLORIDE
     Route: 037
  2. UNKNOWN [Suspect]
     Active Substance: UNSPECIFIED INGREDIENT
     Route: 048
  3. UNKNOWN [Suspect]
     Active Substance: UNSPECIFIED INGREDIENT
     Route: 048
  4. LIDOCAINE. [Suspect]
     Active Substance: LIDOCAINE
     Dosage: 1.0009 MG/DAY
     Route: 037
  5. FENTANYL. [Suspect]
     Active Substance: FENTANYL
     Dosage: 400.1 MCG/DAY
     Route: 037
  6. BACLOFEN. [Suspect]
     Active Substance: BACLOFEN
     Dosage: 10.003 MCG/DAY
     Route: 037
  7. UNKNOWN [Suspect]
     Active Substance: UNSPECIFIED INGREDIENT
     Route: 048

REACTIONS (8)
  - Electric shock [Unknown]
  - Hypoaesthesia [Unknown]
  - No therapeutic response [Unknown]
  - Unevaluable event [Unknown]
  - Headache [Unknown]
  - Weight increased [Unknown]
  - Pain [Unknown]
  - Breast pain [Unknown]

NARRATIVE: CASE EVENT DATE: 201504
